FAERS Safety Report 7643846-9 (Version None)
Quarter: 2011Q3

REPORT INFORMATION
  Report Type: 
  Country: None (occurrence: None)
  Receive Date: 20110729
  Receipt Date: 20100722
  Transmission Date: 20111222
  Serious: No
  Sender: FDA-Public Use
  Company Number: US-GLAXOSMITHKLINE-A0871891A

PATIENT
  Sex: Female

DRUGS (4)
  1. ASPIRIN [Concomitant]
  2. IMITREX [Suspect]
     Indication: MIGRAINE
     Route: 048
     Dates: start: 20100701
  3. VALIUM [Concomitant]
  4. PROTONIX [Concomitant]

REACTIONS (2)
  - HEADACHE [None]
  - DRUG ADMINISTRATION ERROR [None]
